FAERS Safety Report 9139917 (Version 5)
Quarter: 2013Q3

REPORT INFORMATION
  Report Type: Report from Study
  Country: DE (occurrence: DE)
  Receive Date: 20130305
  Receipt Date: 20130905
  Transmission Date: 20140515
  Serious: Yes (Other)
  Sender: FDA-Public Use
  Company Number: DE-JNJFOC-20130216626

PATIENT
  Sex: Female
  Weight: 86 kg

DRUGS (6)
  1. TAPENTADOL PROLONGED RELEASE [Suspect]
     Indication: RADICULOPATHY
     Route: 065
     Dates: start: 20120802, end: 20120830
  2. TRAMADOLOR [Concomitant]
     Indication: RADICULOPATHY
     Route: 065
     Dates: end: 20120802
  3. TRAMADOLOR [Concomitant]
     Indication: RADICULOPATHY
     Route: 065
     Dates: start: 20121001
  4. METOPROLOL [Concomitant]
     Indication: TACHYCARDIA PAROXYSMAL
     Route: 065
  5. METOPROLOL [Concomitant]
     Indication: HYPERTENSION
     Route: 065
  6. SIMVASTATIN [Concomitant]
     Indication: HYPERCHOLESTEROLAEMIA
     Route: 065

REACTIONS (2)
  - Aggression [Recovered/Resolved]
  - Drug ineffective [Unknown]
